FAERS Safety Report 9019147 (Version 1)
Quarter: 2013Q1

REPORT INFORMATION
  Report Type: Spontaneous
  Country: FR (occurrence: FR)
  Receive Date: 20130118
  Receipt Date: 20130118
  Transmission Date: 20140127
  Serious: Yes (Hospitalization)
  Sender: FDA-Public Use
  Company Number: FR-PFIZER INC-2013015678

PATIENT
  Age: 75 Year
  Sex: Female

DRUGS (4)
  1. MEDROL [Suspect]
     Dosage: 24 MG, 1X/DAY
     Route: 048
     Dates: start: 20120719, end: 20120727
  2. MABTHERA [Suspect]
     Dosage: 375 MG, SINGLE
     Route: 042
     Dates: start: 20120719, end: 20120719
  3. CHLORAMINOPHENE [Suspect]
     Dosage: 2 MG, 3X/DAY
     Route: 048
     Dates: start: 20120719, end: 20120727
  4. CHLORAMINOPHENE [Suspect]
     Dosage: UNK

REACTIONS (1)
  - Pancytopenia [Recovering/Resolving]
